FAERS Safety Report 9121018 (Version 1)
Quarter: 2013Q1

REPORT INFORMATION
  Report Type: Spontaneous
  Country: US (occurrence: US)
  Receive Date: 20130226
  Receipt Date: 20130226
  Transmission Date: 20140127
  Serious: No
  Sender: FDA-Public Use
  Company Number: US-009507513-1302USA012294

PATIENT
  Sex: Male

DRUGS (3)
  1. LOTRIMIN ULTRA [Suspect]
     Indication: ERYTHEMA
     Dosage: UNK, UNKNOWN
     Route: 061
     Dates: start: 20120201
  2. LOTRIMIN ULTRA [Suspect]
     Indication: DISCOMFORT
  3. LOTRIMIN ULTRA [Suspect]
     Indication: SKIN FISSURES

REACTIONS (1)
  - Drug effect decreased [Unknown]
